FAERS Safety Report 9715737 (Version 2)
Quarter: 2013Q4

REPORT INFORMATION
  Report Type: Report from Study
  Country: US (occurrence: US)
  Receive Date: 20131127
  Receipt Date: 20131127
  Transmission Date: 20140711
  Serious: Yes (Other)
  Sender: FDA-Public Use
  Company Number: US-ROCHE-1301850

PATIENT
  Age: 15 Year
  Sex: Male
  Weight: 42.6 kg

DRUGS (3)
  1. NUTROPIN [Suspect]
     Indication: GROWTH HORMONE DEFICIENCY
     Dosage: NIGHTLY
     Route: 058
  2. GUANFACINE [Concomitant]
     Indication: PRODUCT USED FOR UNKNOWN INDICATION
     Dosage: DRUG INTUNIV WAS NOT AVAILABLE IN DRL, HENCE CAPTURED USING GENERIC NAME GUANFACINE.
     Route: 048
  3. MIRALAX [Concomitant]
     Indication: PRODUCT USED FOR UNKNOWN INDICATION
     Route: 048

REACTIONS (8)
  - Weight decreased [Unknown]
  - Chest pain [Unknown]
  - Myalgia [Unknown]
  - Asthenia [Unknown]
  - Constipation [Unknown]
  - Mood swings [Unknown]
  - Red blood cell sedimentation rate increased [Unknown]
  - Arthralgia [Unknown]
